FAERS Safety Report 19303515 (Version 1)
Quarter: 2021Q2

REPORT INFORMATION
  Report Type: Spontaneous
  Country: US (occurrence: US)
  Receive Date: 20210525
  Receipt Date: 20210525
  Transmission Date: 20210717
  Serious: Yes (Death)
  Sender: FDA-Public Use
  Company Number: US-AMNEAL PHARMACEUTICALS-2021-AMRX-00579

PATIENT
  Age: 83 Year
  Sex: Male
  Weight: 116 kg

DRUGS (3)
  1. LEVOTHYROXINE SODIUM. [Suspect]
     Active Substance: LEVOTHYROXINE SODIUM
     Dosage: 100 MCG,1 TABLETS, 1X/DAY
     Route: 048
     Dates: start: 2021
  2. LEVOTHYROXINE SODIUM. [Suspect]
     Active Substance: LEVOTHYROXINE SODIUM
     Indication: THYROID DISORDER
     Dosage: 112 MCG
     Route: 048
  3. LEVOTHYROXINE SODIUM. [Suspect]
     Active Substance: LEVOTHYROXINE SODIUM
     Dosage: 125 MCG
     Route: 048
     Dates: start: 2020

REACTIONS (8)
  - Thyroid hormones decreased [Recovering/Resolving]
  - Pain in extremity [Recovered/Resolved]
  - Ageusia [Unknown]
  - Decreased appetite [Unknown]
  - Pain [Recovered/Resolved]
  - Adverse event [Fatal]
  - Dysarthria [Not Recovered/Not Resolved]
  - Asthenia [Unknown]

NARRATIVE: CASE EVENT DATE: 202009
